FAERS Safety Report 4456096-4 (Version None)
Quarter: 2004Q3

REPORT INFORMATION
  Report Type: 
  Country: None (occurrence: None)
  Receive Date: 20040920
  Receipt Date: 20040910
  Transmission Date: 20050211
  Serious: Yes (Hospitalization)
  Sender: FDA-Public Use
  Company Number: 2004-DE-04666GD

PATIENT
  Age: 65 Year
  Sex: Female

DRUGS (6)
  1. METHOTREXATE [Suspect]
     Indication: RHEUMATOID ARTHRITIS
  2. LEFLUNOMIDE [Suspect]
     Indication: RHEUMATOID ARTHRITIS
  3. ATENOLOL [Concomitant]
  4. CAPTOPRIL (CAPTOPRIL)  (IPRATROPIUM-BR) [Concomitant]
  5. METOPROLOL TARTRATE [Concomitant]
  6. OMEPRAZOLE [Concomitant]

REACTIONS (4)
  - FEELING ABNORMAL [None]
  - MOUTH ULCERATION [None]
  - PANCYTOPENIA [None]
  - STREPTOCOCCAL INFECTION [None]
